FAERS Safety Report 10015265 (Version 3)
Quarter: 2014Q2

REPORT INFORMATION
  Report Type: Spontaneous
  Country: US (occurrence: US)
  Receive Date: 20140317
  Receipt Date: 20140514
  Transmission Date: 20141212
  Serious: Yes (Other)
  Sender: FDA-Public Use
  Company Number: US-NOVOPROD-402504

PATIENT
  Age: 37 Year
  Sex: Female
  Weight: 91.61 kg

DRUGS (5)
  1. VICTOZA [Suspect]
     Indication: INSULIN RESISTANCE
     Dosage: 1.2 MG, QD, NOT ON A REGULAR BASIS
     Route: 058
     Dates: start: 20130627, end: 20140206
  2. VICTOZA [Suspect]
     Indication: GLUCOSE TOLERANCE IMPAIRED
     Dosage: 1.8 MG, QD, NOT ON A REGULAR BASIS
     Route: 058
     Dates: start: 201306, end: 20140206
  3. PROZAC [Concomitant]
     Indication: DEPRESSION
     Route: 048
  4. MIRENA [Concomitant]
     Indication: PRODUCT USED FOR UNKNOWN INDICATION
  5. TUMS                               /00193601/ [Concomitant]
     Indication: PRODUCT USED FOR UNKNOWN INDICATION
     Dosage: TWO TIMES A DAY

REACTIONS (2)
  - Papillary thyroid cancer [Recovering/Resolving]
  - Off label use [Recovered/Resolved]
